FAERS Safety Report 18869645 (Version 1)
Quarter: 2021Q1

REPORT INFORMATION
  Report Type: Spontaneous
  Country: IN (occurrence: IN)
  Receive Date: 20210210
  Receipt Date: 20210210
  Transmission Date: 20210420
  Serious: Yes (Hospitalization, Other)
  Sender: FDA-Public Use
  Company Number: IN-LUPIN LIMITED-2021-01369

PATIENT
  Age: 26 Year
  Sex: Male
  Weight: 61 kg

DRUGS (11)
  1. ALPRAZOLAM. [Suspect]
     Active Substance: ALPRAZOLAM
     Indication: PRODUCT USED FOR UNKNOWN INDICATION
     Dosage: UNK TABLET
     Route: 065
  2. ALPRAZOLAM. [Suspect]
     Active Substance: ALPRAZOLAM
     Dosage: 50 DOSAGE FORM, QD (40 TO 50 TABLETS OF 0.5 MG ALPRAZOLAM (20?25 MG) IN DIVIDED DOSES OVER THE NEXT
  3. SILDENAFIL TABLETS [Suspect]
     Active Substance: SILDENAFIL
     Indication: PRODUCT USED FOR UNKNOWN INDICATION
     Dosage: 1 DOSAGE FORM, QD (1 TO 2 TABLETS OF 50 MG SILDENAFIL INITIALLY)
     Route: 048
  4. SILDENAFIL TABLETS [Suspect]
     Active Substance: SILDENAFIL
     Dosage: 10 DOSAGE FORM, QD (HE INCREASED ITS USE TO UP TO 10 TO 12 TABLETS PER DAY IN 3 TO 4 DIVIDED DOSES)
     Route: 048
  5. SILDENAFIL TABLETS [Suspect]
     Active Substance: SILDENAFIL
     Dosage: 2 DOSAGE FORM, QD (1 TO 2 TABLETS OF 50 MG SILDENAFIL INITIALLY)
     Route: 048
  6. TRAMADOL HYDROCHLORIDE TABLET [Suspect]
     Active Substance: TRAMADOL HYDROCHLORIDE
     Dosage: 25 DOSAGE FORM, QD (HE GRADUALLY INCREASED THEIR USE TO UP TO 25 TO 30 TABLETS OF 50 MG TRAMADOL (12
     Route: 065
  7. SILDENAFIL TABLETS [Suspect]
     Active Substance: SILDENAFIL
     Dosage: 12 DOSAGE FORM, QD (HE INCREASED ITS USE TO UP TO 10 TO 12 TABLETS PER DAY IN 3 TO 4 DIVIDED DOSES)
     Route: 048
  8. TRAMADOL HYDROCHLORIDE TABLET [Suspect]
     Active Substance: TRAMADOL HYDROCHLORIDE
     Dosage: UNK
     Route: 065
  9. SILDENAFIL TABLETS [Suspect]
     Active Substance: SILDENAFIL
     Dosage: 2000 MILLIGRAM, QD (2000 MG IN 3 TO 4 DIVIDED DOSES)
     Route: 048
  10. ALPRAZOLAM. [Suspect]
     Active Substance: ALPRAZOLAM
     Dosage: 40 DOSAGE FORM, QD (40 TO 50 TABLETS OF 0.5 MG ALPRAZOLAM (20?25 MG) IN DIVIDED DOSES OVER THE NEXT
     Route: 065
  11. TRAMADOL HYDROCHLORIDE TABLET [Suspect]
     Active Substance: TRAMADOL HYDROCHLORIDE
     Indication: PRODUCT USED FOR UNKNOWN INDICATION
     Dosage: 30 DOSAGE FORM, QD (HE GRADUALLY INCREASED THEIR USE TO UP TO 25 TO 30 TABLETS OF 50 MG TRAMADOL (12
     Route: 065

REACTIONS (11)
  - Intentional product misuse [Unknown]
  - Euphoric mood [Unknown]
  - Drug dependence [Unknown]
  - Headache [Unknown]
  - Drug use disorder [Unknown]
  - Drug tolerance [Unknown]
  - Drug abuse [Unknown]
  - Withdrawal syndrome [Unknown]
  - Obsessive thoughts [Unknown]
  - Vision blurred [Unknown]
  - Feeling of relaxation [Unknown]
